FAERS Safety Report 15880928 (Version 2)
Quarter: 2019Q1

REPORT INFORMATION
  Report Type: Spontaneous
  Country: CH (occurrence: CH)
  Receive Date: 20190128
  Receipt Date: 20190306
  Transmission Date: 20190417
  Serious: Yes (Other)
  Sender: FDA-Public Use
  Company Number: CH-PFIZER INC-2019031083

PATIENT
  Age: 90 Year
  Sex: Female

DRUGS (9)
  1. TRASTUZUMAB. [Concomitant]
     Active Substance: TRASTUZUMAB
  2. LETROZOLE. [Concomitant]
     Active Substance: LETROZOLE
     Dosage: UNK
  3. ASPIRIN [ACETYLSALICYLIC ACID] [Concomitant]
     Active Substance: ASPIRIN
     Indication: CEREBRAL ARTERY STENOSIS
  4. IBRANCE [Suspect]
     Active Substance: PALBOCICLIB
     Indication: BREAST CANCER METASTATIC
     Dosage: 125 MG, CYCLIC (1X/DAY, D1-21, Q4W)
     Route: 048
     Dates: start: 20190103, end: 20190117
  5. ATORVASTAX [Concomitant]
     Indication: CORONARY ARTERY DISEASE
     Dosage: 40 MG, 1X/DAY (0-0-1)
     Route: 048
  6. IBRANCE [Suspect]
     Active Substance: PALBOCICLIB
     Dosage: 75 MG, CYCLIC (1X/DAY, D1-21, Q4W)
     Route: 048
     Dates: start: 20190205
  7. BILOL [Concomitant]
     Active Substance: BISOPROLOL
     Indication: CORONARY ARTERY DISEASE
     Dosage: 2.5 MG, 1X/DAY
     Route: 048
  8. ATACAND PLUS [Concomitant]
     Active Substance: CANDESARTAN CILEXETIL\HYDROCHLOROTHIAZIDE
     Indication: CORONARY ARTERY DISEASE
     Dosage: 16 MG, 1X/DAY (1-0-0)
     Route: 048
  9. ASPIRIN [ACETYLSALICYLIC ACID] [Concomitant]
     Active Substance: ASPIRIN
     Indication: CORONARY ARTERY DISEASE
     Dosage: 100 MG, 1X/DAY
     Route: 048

REACTIONS (4)
  - Granulocytopenia [Recovered/Resolved]
  - Leukopenia [Unknown]
  - Thrombocytopenia [Recovered/Resolved]
  - Product use in unapproved indication [Unknown]

NARRATIVE: CASE EVENT DATE: 20190103
